FAERS Safety Report 8347625-9 (Version None)
Quarter: 2012Q2

REPORT INFORMATION
  Report Type: 
  Country: None (occurrence: None)
  Receive Date: 20120509
  Receipt Date: 20120425
  Transmission Date: 20120825
  Serious: Yes (Hospitalization, Other)
  Sender: FDA-Public Use
  Company Number: ES-ELI_LILLY_AND_COMPANY-ES201204009526

PATIENT
  Age: 91 Year
  Sex: Female

DRUGS (6)
  1. LOSARTAN POTASSIUM [Concomitant]
     Indication: HYPERTENSION
     Dosage: 75 MG, UNK
     Route: 048
     Dates: start: 20100801, end: 20110712
  2. FENOFIBRATE [Concomitant]
     Dosage: 145 MG, QD
     Route: 048
     Dates: end: 20110712
  3. SINTROM [Concomitant]
     Indication: PROPHYLAXIS
     Dosage: UNK
     Route: 048
     Dates: start: 20081001, end: 20110712
  4. OMEPRAZOLE [Concomitant]
     Indication: GASTRITIS PROPHYLAXIS
     Dosage: 20 MG, QD
     Route: 048
     Dates: start: 20080301
  5. CYMBALTA [Suspect]
     Indication: DEPRESSION
     Dosage: 60 MG, QD
     Route: 048
     Dates: start: 20110301, end: 20110712
  6. LETROZOL [Concomitant]
     Dosage: 2.5 MG, QD
     Route: 048
     Dates: start: 20110501, end: 20110712

REACTIONS (6)
  - HAEMORRHAGE INTRACRANIAL [None]
  - SYNCOPE [None]
  - DRUG INTERACTION [None]
  - ATRIAL FLUTTER [None]
  - FRACTURE [None]
  - PYREXIA [None]
